FAERS Safety Report 9553104 (Version 2)
Quarter: 2013Q4

REPORT INFORMATION
  Report Type: Spontaneous
  Country: US (occurrence: None)
  Receive Date: 20130913
  Receipt Date: 20131101
  Transmission Date: 20140711
  Serious: Yes (Other)
  Sender: FDA-Public Use
  Company Number: 2013037922

PATIENT
  Sex: Female
  Weight: 85.28 kg

DRUGS (8)
  1. PRIVIGEN [Suspect]
     Indication: IMMUNODEFICIENCY
     Dosage: 90 G 1X4 WEEKS, 3 TO 8 HOURS
     Route: 042
  2. DIPHENHYDRAMINE (DIPHENHYDRAMINE) [Concomitant]
  3. SODIUM CHLORIDE [Concomitant]
  4. EPI-PEN (EPINEPHRINE) [Concomitant]
  5. HEPARIN (HEPARIN) [Concomitant]
  6. HYDROCODONE ACETAMINOPHNE (PROCET /01554201/) [Concomitant]
  7. BUTRANS (BUPRENORPHINE) [Concomitant]
  8. DAPTOMYCIN (DAPTOMYCIN) [Concomitant]

REACTIONS (2)
  - Kidney infection [None]
  - Urinary tract infection [None]
